FAERS Safety Report 9665923 (Version 1)
Quarter: 2013Q4

REPORT INFORMATION
  Report Type: Spontaneous
  Country: US (occurrence: US)
  Receive Date: 20131104
  Receipt Date: 20131104
  Transmission Date: 20140711
  Serious: No
  Sender: FDA-Public Use
  Company Number: US-GLAXOSMITHKLINE-A1041544A

PATIENT
  Age: 50 Year
  Sex: Female

DRUGS (2)
  1. SORILUX [Suspect]
     Indication: PSORIASIS
     Route: 061
     Dates: start: 201304, end: 201307
  2. TACLONEX [Concomitant]

REACTIONS (1)
  - Drug ineffective [Unknown]
